FAERS Safety Report 5517501-5 (Version None)
Quarter: 2007Q4

REPORT INFORMATION
  Report Type: 
  Country: None (occurrence: None)
  Receive Date: 20071114
  Receipt Date: 20071112
  Transmission Date: 20080405
  Serious: Yes (Hospitalization)
  Sender: FDA-Public Use
  Company Number: DE-JNJFOC-20071103437

PATIENT
  Age: 89 Year
  Sex: Female

DRUGS (12)
  1. HALDOL [Suspect]
     Route: 048
  2. HALDOL [Suspect]
     Route: 048
  3. HALDOL [Suspect]
     Indication: DRUG USE FOR UNKNOWN INDICATION
     Route: 048
  4. TAVOR [Interacting]
     Route: 048
  5. TAVOR [Interacting]
     Indication: DRUG USE FOR UNKNOWN INDICATION
     Route: 048
  6. SEROQUEL [Interacting]
     Route: 048
  7. SEROQUEL [Interacting]
     Route: 048
  8. SEROQUEL [Interacting]
     Indication: DRUG USE FOR UNKNOWN INDICATION
     Route: 048
  9. DOMINAL [Interacting]
     Indication: DRUG USE FOR UNKNOWN INDICATION
     Route: 048
  10. DIGIMERCK [Concomitant]
     Route: 048
  11. ASPIRIN [Concomitant]
     Route: 048
  12. RAMIPRIL [Concomitant]
     Route: 048

REACTIONS (4)
  - DRUG INTERACTION [None]
  - DYSARTHRIA [None]
  - FALL [None]
  - SEDATION [None]
